FAERS Safety Report 9779135 (Version 2)
Quarter: 2015Q1

REPORT INFORMATION
  Report Type: Spontaneous
  Country: IT (occurrence: IT)
  Receive Date: 20131223
  Receipt Date: 20150302
  Transmission Date: 20150721
  Serious: Yes (Death, Hospitalization, Other)
  Sender: FDA-Public Use
  Company Number: IT-MYLANLABS-2013S1028310

PATIENT

DRUGS (3)
  1. METFORMIN [Suspect]
     Active Substance: METFORMIN HYDROCHLORIDE
     Indication: TYPE 2 DIABETES MELLITUS
     Dosage: 850 MG, TID
     Route: 065
  2. REPAGLINIDE. [Concomitant]
     Active Substance: REPAGLINIDE
     Dosage: 1 MG, QD
     Route: 065
  3. ANAGRELIDE [Concomitant]
     Active Substance: ANAGRELIDE
     Dosage: 0.5 MG, BID
     Route: 065

REACTIONS (8)
  - Diarrhoea [Unknown]
  - Toxicity to various agents [Fatal]
  - Dyspnoea [Unknown]
  - Blood creatinine increased [Unknown]
  - Hypoglycaemia [Unknown]
  - Abdominal pain [Unknown]
  - Lactic acidosis [Unknown]
  - Tachycardia [Unknown]
